FAERS Safety Report 9101836 (Version 2)
Quarter: 2013Q1

REPORT INFORMATION
  Report Type: Spontaneous
  Country: JP (occurrence: JP)
  Receive Date: 20130218
  Receipt Date: 20130318
  Transmission Date: 20140127
  Serious: Yes (Hospitalization)
  Sender: FDA-Public Use
  Company Number: JP-ASTELLAS-2013JP001696

PATIENT
  Age: 40 Year
  Sex: Female

DRUGS (6)
  1. PROGRAF [Suspect]
     Indication: LUPUS NEPHRITIS
     Dosage: 3 MG, UID/QD
     Route: 048
     Dates: start: 20121019, end: 20130201
  2. PROGRAF [Suspect]
     Indication: SYSTEMIC LUPUS ERYTHEMATOSUS
  3. PREDONINE                          /00016201/ [Concomitant]
     Indication: SYSTEMIC LUPUS ERYTHEMATOSUS
     Dosage: 5 MG, UID/QD
     Route: 048
     Dates: start: 20120420
  4. ONEALFA [Concomitant]
     Indication: PROPHYLAXIS
     Dosage: 1 UG, UID/QD
     Route: 048
     Dates: start: 20060825
  5. GASTER [Concomitant]
     Indication: PROPHYLAXIS
     Dosage: 20 MG, UID/QD
     Route: 048
     Dates: start: 20080318
  6. FOSAMAC [Concomitant]
     Indication: PROPHYLAXIS
     Dosage: 35 MG, WEEKLY
     Route: 048
     Dates: start: 20101203

REACTIONS (1)
  - Liver disorder [Recovering/Resolving]
